FAERS Safety Report 24399001 (Version 1)
Quarter: 2024Q4

REPORT INFORMATION
  Report Type: Report from Study
  Country: US (occurrence: US)
  Receive Date: 20241004
  Receipt Date: 20241004
  Transmission Date: 20250114
  Serious: No
  Sender: SANDOZ
  Company Number: US-SANDOZ-SDZ2024US084130

PATIENT
  Sex: Male

DRUGS (2)
  1. OMNITROPE [Suspect]
     Active Substance: SOMATROPIN
     Indication: Product used for unknown indication
     Dosage: VIAL
     Route: 065
     Dates: start: 20241002
  2. OMNITROPE [Suspect]
     Active Substance: SOMATROPIN
     Indication: Product used for unknown indication
     Dosage: VIAL
     Route: 065
     Dates: start: 20241002

REACTIONS (3)
  - Incorrect dose administered [Unknown]
  - Product preparation issue [Unknown]
  - Needle issue [Unknown]
